FAERS Safety Report 24642506 (Version 2)
Quarter: 2024Q4

REPORT INFORMATION
  Report Type: Report from Study
  Country: KR (occurrence: KR)
  Receive Date: 20241120
  Receipt Date: 20241231
  Transmission Date: 20250114
  Serious: No
  Sender: EXELIXIS
  Company Number: KR-EXELIXIS-EXL-2024-002335

PATIENT

DRUGS (3)
  1. CABOZANTINIB S-MALATE [Suspect]
     Active Substance: CABOZANTINIB S-MALATE
     Indication: Renal cell carcinoma
     Dosage: 40 MILLIGRAM, QD
     Route: 048
     Dates: start: 20211117
  2. ATEZOLIZUMAB [Suspect]
     Active Substance: ATEZOLIZUMAB
     Indication: Renal cell carcinoma
     Dosage: 1200 MILLIGRAM, Q4WEEKS
     Route: 042
     Dates: start: 20211117
  3. SYNTHROID [Concomitant]
     Active Substance: LEVOTHYROXINE SODIUM
     Indication: Hypothyroidism
     Dosage: 0.05 MG, QD
     Route: 048
     Dates: start: 20240313

REACTIONS (3)
  - Diarrhoea [Recovering/Resolving]
  - Hypothyroidism [Recovering/Resolving]
  - Angina pectoris [Not Recovered/Not Resolved]

NARRATIVE: CASE EVENT DATE: 20211117
